FAERS Safety Report 18915399 (Version 47)
Quarter: 2022Q4

REPORT INFORMATION
  Report Type: Report from Study
  Country: GB (occurrence: GB)
  Receive Date: 20210219
  Receipt Date: 20221223
  Transmission Date: 20230113
  Serious: Yes (Death, Other)
  Sender: FDA-Public Use
  Company Number: GB-GSKCCFEMEA-CASE-01140699_AE-40315

PATIENT
  Sex: Female

DRUGS (131)
  1. CIPROFLOXACIN [Suspect]
     Active Substance: CIPROFLOXACIN
     Indication: Product used for unknown indication
     Dosage: UNK
     Route: 065
  2. CIPROFLOXACIN [Suspect]
     Active Substance: CIPROFLOXACIN
     Dosage: UNK
     Route: 065
  3. CIPROFLOXACIN [Suspect]
     Active Substance: CIPROFLOXACIN
     Indication: Product used for unknown indication
     Dosage: UNK
     Route: 065
  4. CIPROFLOXACIN [Suspect]
     Active Substance: CIPROFLOXACIN
     Dosage: UNK
     Route: 065
  5. CIPROFLOXACIN [Suspect]
     Active Substance: CIPROFLOXACIN
     Dosage: UNK
     Route: 065
  6. CIPROFLOXACIN [Suspect]
     Active Substance: CIPROFLOXACIN
     Dosage: UNK
     Route: 065
  7. CIPROFLOXACIN [Suspect]
     Active Substance: CIPROFLOXACIN
     Dosage: INHALATION
     Route: 055
  8. CIPROFLOXACIN [Suspect]
     Active Substance: CIPROFLOXACIN
     Dosage: UNK
  9. CIPROFLOXACIN [Suspect]
     Active Substance: CIPROFLOXACIN
     Dosage: UNK (MODIFIED-RELEASE TABLET)
     Route: 065
  10. CIPROFLOXACIN [Suspect]
     Active Substance: CIPROFLOXACIN
     Dosage: UNK(SOLUTION FOR INFUSION)
     Route: 065
  11. CIPROFLOXACIN [Suspect]
     Active Substance: CIPROFLOXACIN
     Dosage: UNK (SOLUTION FOR INFUSION)
  12. CIPROFLOXACIN [Suspect]
     Active Substance: CIPROFLOXACIN
     Dosage: 2DF(2PUFF)AEROSOL,25MCG,DRY POWDER INHALER
     Route: 065
  13. ONDANSETRON [Suspect]
     Active Substance: ONDANSETRON
     Indication: Product used for unknown indication
     Dosage: UNK, PRN
     Route: 065
  14. ONDANSETRON [Suspect]
     Active Substance: ONDANSETRON
     Dosage: UNK
     Route: 065
  15. ONDANSETRON [Suspect]
     Active Substance: ONDANSETRON
     Dosage: UNK
     Route: 065
  16. ALBUTEROL [Suspect]
     Active Substance: ALBUTEROL
     Indication: Product used for unknown indication
     Dosage: 100 MICROGRAM
     Route: 055
  17. ALBUTEROL [Suspect]
     Active Substance: ALBUTEROL
     Dosage: UNK
     Route: 055
  18. ALBUTEROL [Suspect]
     Active Substance: ALBUTEROL
     Dosage: 100 UG, UNK
  19. ALBUTEROL [Suspect]
     Active Substance: ALBUTEROL
     Dosage: UNK
  20. ALBUTEROL [Suspect]
     Active Substance: ALBUTEROL
     Dosage: UNK
  21. ALBUTEROL [Suspect]
     Active Substance: ALBUTEROL
     Dosage: 110 MICROGRAM
     Route: 055
  22. ALBUTEROL [Suspect]
     Active Substance: ALBUTEROL
     Dosage: 100 UG, UNK; CFC -FREE INHALER)
     Route: 055
  23. ALBUTEROL [Suspect]
     Active Substance: ALBUTEROL
     Dosage: 25 MCG (AEROSOL INHALATION (CFC FREE)
     Route: 055
  24. ALBUTEROL [Suspect]
     Active Substance: ALBUTEROL
     Dosage: 2 DF(2 PUFFS)(AEROSOL INHALATION) 25 ,MCG
     Route: 055
  25. ALBUTEROL [Suspect]
     Active Substance: ALBUTEROL
     Dosage: 2 DOSAGE FORM, PRN
     Route: 055
  26. ALBUTEROL [Suspect]
     Active Substance: ALBUTEROL
     Dosage: UNK,110 MICROGRAM
  27. ALBUTEROL [Suspect]
     Active Substance: ALBUTEROL
     Dosage: 110 MICROGRAM
  28. ALBUTEROL [Suspect]
     Active Substance: ALBUTEROL
     Dosage: 110 MICROGRAM
     Route: 065
  29. ALBUTEROL [Suspect]
     Active Substance: ALBUTEROL
     Dosage: 110 MICROGRAM
     Route: 065
  30. ALBUTEROL [Suspect]
     Active Substance: ALBUTEROL
     Dosage: 110 MICROGRAM
     Route: 065
  31. ALBUTEROL [Suspect]
     Active Substance: ALBUTEROL
     Dosage: 10 MICROGRAM
     Route: 065
  32. ALBUTEROL [Suspect]
     Active Substance: ALBUTEROL
     Dosage: 10 MICROGRAM
     Route: 065
  33. ALBUTEROL [Suspect]
     Active Substance: ALBUTEROL
     Dosage: 10 MICROGRAM
     Route: 065
  34. ALBUTEROL [Suspect]
     Active Substance: ALBUTEROL
     Dosage: 10 MICROGRAM
     Route: 065
  35. ALBUTEROL [Suspect]
     Active Substance: ALBUTEROL
     Dosage: UNK
     Route: 065
  36. ALBUTEROL [Suspect]
     Active Substance: ALBUTEROL
     Dosage: UNK
  37. ALBUTEROL [Suspect]
     Active Substance: ALBUTEROL
     Dosage: 10 MICROGRAM
     Route: 065
  38. ALBUTEROL [Suspect]
     Active Substance: ALBUTEROL
     Dosage: 100 MICROGRAM
  39. ALBUTEROL [Suspect]
     Active Substance: ALBUTEROL
     Dosage: UNK
  40. ENOXAPARIN [Suspect]
     Active Substance: ENOXAPARIN
     Indication: Product used for unknown indication
     Dosage: UNK
     Route: 065
  41. ENOXAPARIN [Suspect]
     Active Substance: ENOXAPARIN
     Dosage: UNK
     Route: 065
  42. ALBUTEROL [Suspect]
     Active Substance: ALBUTEROL
     Indication: Product used for unknown indication
     Dosage: 100 MICROGRAM
     Route: 055
  43. ALBUTEROL [Suspect]
     Active Substance: ALBUTEROL
     Dosage: UNK
     Route: 065
  44. ALBUTEROL [Suspect]
     Active Substance: ALBUTEROL
     Dosage: 110 MICROGRAM
     Route: 055
  45. ALBUTEROL [Suspect]
     Active Substance: ALBUTEROL
     Dosage: 2 DOSAGE FORM, (2 PUFFS) 25 MCG
  46. ALBUTEROL [Suspect]
     Active Substance: ALBUTEROL
     Dosage: 25 MICROGRAM FOR ENDOSINUSIAL SOLUTION
     Route: 065
  47. ALBUTEROL [Suspect]
     Active Substance: ALBUTEROL
     Dosage: 100 MICROGRAM
  48. ALBUTEROL [Suspect]
     Active Substance: ALBUTEROL
     Dosage: 25 MICROGRAM (AEROSOL INHALATION (CFC FREE)
     Route: 065
  49. ALBUTEROL [Suspect]
     Active Substance: ALBUTEROL
     Dosage: 100 MICROGRAM(CFC-FREE INHALER 100 MICROGRAMS)
     Route: 065
  50. ALBUTEROL [Suspect]
     Active Substance: ALBUTEROL
     Dosage: 25 MICROGRAMS AEROSOL (CFC FREE)2 PUFF
     Route: 055
  51. ALBUTEROL [Suspect]
     Active Substance: ALBUTEROL
     Dosage: 2DF AEROSOL2 PUFF25 MCG
  52. ALBUTEROL [Suspect]
     Active Substance: ALBUTEROL
     Dosage: 100 UG, SALMETEROL XINAFOATE DISKUS DRY POWDER
  53. ALBUTEROL [Suspect]
     Active Substance: ALBUTEROL
     Dosage: 110 UG
  54. ALBUTEROL [Suspect]
     Active Substance: ALBUTEROL
     Dosage: 25 MG (AEROSOL INHALATION (CFC FREE) 2 PUFF
  55. ALBUTEROL [Suspect]
     Active Substance: ALBUTEROL
     Dosage: 100 MICROGRAM, PRN
     Route: 065
  56. ALBUTEROL [Suspect]
     Active Substance: ALBUTEROL
     Dosage: 25 MICROGRAMS
  57. SEREVENT DISKUS [Suspect]
     Active Substance: SALMETEROL XINAFOATE
     Indication: Product used for unknown indication
     Dosage: 2 DOSAGE FORM,2 PUFF(S)
     Route: 055
  58. SEREVENT DISKUS [Suspect]
     Active Substance: SALMETEROL XINAFOATE
     Dosage: 25 MICROGRAM 2 PUFF(S)
     Route: 055
  59. SEREVENT DISKUS [Suspect]
     Active Substance: SALMETEROL XINAFOATE
     Dosage: 2DF(2PUFF)AEROSOL,25MCG,INHALER
     Route: 055
  60. SEREVENT DISKUS [Suspect]
     Active Substance: SALMETEROL XINAFOATE
     Dosage: 100 MICROGRAM, PRN
     Route: 055
  61. SEREVENT DISKUS [Suspect]
     Active Substance: SALMETEROL XINAFOATE
     Dosage: 100 MICROGRAM
     Route: 055
  62. SEREVENT DISKUS [Suspect]
     Active Substance: SALMETEROL XINAFOATE
     Dosage: 25 MICROGRAM, POWDER FOR ENDOSINUSIAL SOLUTION
     Route: 055
  63. SEREVENT DISKUS [Suspect]
     Active Substance: SALMETEROL XINAFOATE
     Dosage: 2 DOSAGE FORM, 2 PUFF(S), 25MCG
     Route: 055
  64. SEREVENT DISKUS [Suspect]
     Active Substance: SALMETEROL XINAFOATE
     Dosage: 2 DOSAGE FORM, 2 PUFF(S)
     Route: 055
  65. SEREVENT DISKUS [Suspect]
     Active Substance: SALMETEROL XINAFOATE
     Dosage: SALMETEROL XINAFOATE DISKUS DRY POWDER INHALER
     Route: 055
  66. SEREVENT DISKUS [Suspect]
     Active Substance: SALMETEROL XINAFOATE
     Dosage: 2 DF (2 PUFFS) (AEROSOL INHALATION)
     Route: 055
  67. SEREVENT DISKUS [Suspect]
     Active Substance: SALMETEROL XINAFOATE
     Dosage: 100UG (SALMETEROL XINAFOATE DISKUS DRY POWDER)
  68. SEREVENT DISKUS [Suspect]
     Active Substance: SALMETEROL XINAFOATE
     Dosage: 110 MICROGRAM
     Route: 065
  69. SEREVENT DISKUS [Suspect]
     Active Substance: SALMETEROL XINAFOATE
     Dosage: 25 MICROGRAM 2 PUFF(S)
     Route: 055
  70. SEREVENT DISKUS [Suspect]
     Active Substance: SALMETEROL XINAFOATE
     Dosage: 25 MICROGRAM 2 PUFF(S)
     Route: 055
  71. SEREVENT DISKUS [Suspect]
     Active Substance: SALMETEROL XINAFOATE
     Dosage: 2DF(2PUFF)AEROSOL,25MCG
     Route: 055
  72. SALMETEROL XINAFOATE [Suspect]
     Active Substance: SALMETEROL XINAFOATE
     Indication: Product used for unknown indication
     Dosage: 2 PUFF, POWDER, SOLVENT FOR ENDOSINUSIAL SOL,
     Route: 055
  73. SALMETEROL XINAFOATE [Suspect]
     Active Substance: SALMETEROL XINAFOATE
     Dosage: 2 DF (2 PUFFS) (AEROSOL INHALATION)
     Route: 055
  74. SALMETEROL XINAFOATE [Suspect]
     Active Substance: SALMETEROL XINAFOATE
     Dosage: 25 MICROGRAM (2 PUFF(S))
     Route: 055
  75. SALMETEROL XINAFOATE [Suspect]
     Active Substance: SALMETEROL XINAFOATE
     Dosage: 100 MICROGRAM
     Route: 055
  76. SALMETEROL XINAFOATE [Suspect]
     Active Substance: SALMETEROL XINAFOATE
     Dosage: 2 DF 2 PUFFS AEROSOL INHALATION)
     Route: 055
  77. SALMETEROL XINAFOATE [Suspect]
     Active Substance: SALMETEROL XINAFOATE
     Dosage: 2 DF (2 PUFFS) (AEROSOL INHALATION)
     Route: 055
  78. SALMETEROL XINAFOATE [Suspect]
     Active Substance: SALMETEROL XINAFOATE
     Dosage: 2DF (25 MCG (DRY POWDER INHALER DEVICE INHALER)
     Route: 055
  79. SALMETEROL XINAFOATE [Suspect]
     Active Substance: SALMETEROL XINAFOATE
     Dosage: 2 DF (2 PUFFS) (AEROSOL INHALATION), 25 MCG
     Route: 055
  80. SALMETEROL XINAFOATE [Suspect]
     Active Substance: SALMETEROL XINAFOATE
     Dosage: 100 MICROGRAM
     Route: 055
  81. SALMETEROL XINAFOATE [Suspect]
     Active Substance: SALMETEROL XINAFOATE
     Dosage: 25 MCG (POWDER FOR ENDOSINUSIAL SOLUTION)
     Route: 055
  82. SALMETEROL XINAFOATE [Suspect]
     Active Substance: SALMETEROL XINAFOATE
     Dosage: UNK
  83. SALMETEROL XINAFOATE [Suspect]
     Active Substance: SALMETEROL XINAFOATE
     Dosage: 100 MILLIGRAM, UNK
     Route: 055
  84. SALMETEROL XINAFOATE [Suspect]
     Active Substance: SALMETEROL XINAFOATE
     Dosage: 110 MICROGRAM
     Route: 055
  85. SALMETEROL XINAFOATE [Suspect]
     Active Substance: SALMETEROL XINAFOATE
     Dosage: 25 UG (ALMETEROL XINAFOATE DISKUS DRY POWDER)
     Route: 065
  86. SALMETEROL XINAFOATE [Suspect]
     Active Substance: SALMETEROL XINAFOATE
     Dosage: 25 MICROGRAM, UNK
     Route: 065
  87. SALMETEROL XINAFOATE [Suspect]
     Active Substance: SALMETEROL XINAFOATE
     Dosage: 25UG, PRN,2 DF AEROSOL,
  88. SALMETEROL XINAFOATE [Suspect]
     Active Substance: SALMETEROL XINAFOATE
     Dosage: 100 UG, PRN
  89. SALMETEROL XINAFOATE [Suspect]
     Active Substance: SALMETEROL XINAFOATE
     Dosage: 110 MICROGRAM
  90. SALMETEROL XINAFOATE [Suspect]
     Active Substance: SALMETEROL XINAFOATE
     Dosage: 25MCG 2PUFF
  91. SALMETEROL XINAFOATE [Suspect]
     Active Substance: SALMETEROL XINAFOATE
     Dosage: 2 PUFFS, PRN
  92. SALMETEROL XINAFOATE [Suspect]
     Active Substance: SALMETEROL XINAFOATE
     Dosage: UNK (DISKUS DRY POWDER INHALER DEVICE )
  93. SALMETEROL XINAFOATE [Suspect]
     Active Substance: SALMETEROL XINAFOATE
     Dosage: UNK
     Route: 065
  94. SALMETEROL XINAFOATE [Suspect]
     Active Substance: SALMETEROL XINAFOATE
     Dosage: 25 MCG (DRY POWDER INHALER DEVICE INHALER)
     Route: 065
  95. SALMETEROL [Suspect]
     Active Substance: SALMETEROL
     Indication: Product used for unknown indication
     Dosage: DISKUS DRY POWDER INHALER DEVICE
     Route: 065
  96. SALMETEROL [Suspect]
     Active Substance: SALMETEROL
     Dosage: 100 MICROGRAM(DISKUS DRY POWDER INHALER DEVICE)
     Route: 055
  97. SALMETEROL [Suspect]
     Active Substance: SALMETEROL
     Dosage: 2 DF (2 PUFFS) (AEROSOL INHALATION) 25 MCG
     Route: 055
  98. SALMETEROL [Suspect]
     Active Substance: SALMETEROL
     Dosage: 100 MICROGRAM, UNK
     Route: 055
  99. SALMETEROL [Suspect]
     Active Substance: SALMETEROL
     Dosage: POWDER FOR ENDOSINUSIAL SOLUTION 25 MICROGRAM
     Route: 055
  100. SALMETEROL [Suspect]
     Active Substance: SALMETEROL
     Dosage: UNK
     Route: 065
  101. SALMETEROL [Suspect]
     Active Substance: SALMETEROL
     Dosage: 110 MICROGRAM(DISKUS DRY POWDER INHALER DEVICE)
     Route: 055
  102. SALMETEROL [Suspect]
     Active Substance: SALMETEROL
     Dosage: 110 MICROGRAM
     Route: 065
  103. CIPROFLOXACIN LACTATE [Suspect]
     Active Substance: CIPROFLOXACIN LACTATE
     Indication: Product used for unknown indication
     Dosage: UNK
     Route: 065
  104. CIPROFLOXACIN LACTATE [Suspect]
     Active Substance: CIPROFLOXACIN LACTATE
     Dosage: UNK, GENERIC FORMULATION: INHALATION POWDER
     Route: 065
  105. CIPROFLOXACIN LACTATE [Suspect]
     Active Substance: CIPROFLOXACIN LACTATE
     Dosage: UNK
     Route: 065
  106. CIPROFLOXACIN LACTATE [Suspect]
     Active Substance: CIPROFLOXACIN LACTATE
     Dosage: UNK
     Route: 065
  107. CIPROFLOXACIN LACTATE [Suspect]
     Active Substance: CIPROFLOXACIN LACTATE
     Dosage: UNK
     Route: 065
  108. CIPROFLOXACIN LACTATE [Suspect]
     Active Substance: CIPROFLOXACIN LACTATE
     Dosage: UNK
     Route: 065
  109. CIPROFLOXACIN LACTATE [Suspect]
     Active Substance: CIPROFLOXACIN LACTATE
     Dosage: UNK
     Route: 065
  110. CIPROFLOXACIN LACTATE [Suspect]
     Active Substance: CIPROFLOXACIN LACTATE
     Dosage: UNK (MODIFIED RELEASE TABLET)
     Route: 065
  111. CIPROFLOXACIN LACTATE [Suspect]
     Active Substance: CIPROFLOXACIN LACTATE
     Indication: Product used for unknown indication
     Dosage: 2DF,2PUFFS AEROSOL,25MCG DRY POWDER
     Route: 055
  112. CIPROFLOXACIN LACTATE [Suspect]
     Active Substance: CIPROFLOXACIN LACTATE
     Dosage: 2 DOSAGE FORM, (2 PUFFS), 25 MCG
     Route: 055
  113. CIPROFLOXACIN LACTATE [Suspect]
     Active Substance: CIPROFLOXACIN LACTATE
     Dosage: UNK (SOLUTION FOR INFUSION/ INTRAVENOUS INFUSIO
     Route: 065
  114. CIPROFLOXACIN LACTATE [Suspect]
     Active Substance: CIPROFLOXACIN LACTATE
     Dosage: 2 DOSAGE FORM (AEROSOL INHALATION), 25 MCG
  115. CIPROFLOXACIN LACTATE [Suspect]
     Active Substance: CIPROFLOXACIN LACTATE
     Dosage: UNK
     Route: 042
  116. CIPROFLOXACIN LACTATE [Suspect]
     Active Substance: CIPROFLOXACIN LACTATE
     Dosage: UNK
     Route: 065
  117. CIPROFLOXACIN [Suspect]
     Active Substance: CIPROFLOXACIN
     Indication: Product used for unknown indication
     Dosage: UNK
     Route: 065
  118. CIPROFLOXACIN [Suspect]
     Active Substance: CIPROFLOXACIN
     Dosage: SOLUTION FOR INFUSION, INHALATION POWDER
     Route: 065
  119. CIPROFLOXACIN [Suspect]
     Active Substance: CIPROFLOXACIN
     Dosage: 2 DOSAGEFORM (2 PUFFS(AEROSOL INHALATION) 25 MCG
     Route: 065
  120. CIPROFLOXACIN [Suspect]
     Active Substance: CIPROFLOXACIN
     Dosage: UNK
     Route: 065
  121. CIPROFLOXACIN [Suspect]
     Active Substance: CIPROFLOXACIN
     Dosage: UNK (SOLUTION FOR INFUSION)
     Route: 065
  122. CIPROFLOXACIN [Suspect]
     Active Substance: CIPROFLOXACIN
     Dosage: UNK
     Route: 065
  123. CIPROFLOXACIN [Suspect]
     Active Substance: CIPROFLOXACIN
     Dosage: UNK (MODIFIED-RELEASE TABLET)
     Route: 065
  124. CIPROFLOXACIN [Suspect]
     Active Substance: CIPROFLOXACIN
     Dosage: UNK
     Route: 065
  125. CIPROFLOXACIN [Suspect]
     Active Substance: CIPROFLOXACIN
     Dosage: UNK
     Route: 065
  126. CIPROFLOXACIN [Suspect]
     Active Substance: CIPROFLOXACIN
     Dosage: UNK
     Route: 065
  127. CIPROFLOXACIN [Suspect]
     Active Substance: CIPROFLOXACIN
     Dosage: UNK
     Route: 065
  128. CIPROFLOXACIN [Suspect]
     Active Substance: CIPROFLOXACIN
     Dosage: UNK(MODIFIED RELEASE TABLET)
     Route: 065
  129. ENOXAPARIN [Suspect]
     Active Substance: ENOXAPARIN
     Indication: Product used for unknown indication
     Dosage: UNK
     Route: 065
  130. ENOXAPARIN [Suspect]
     Active Substance: ENOXAPARIN
     Dosage: UNK
     Route: 065
  131. ONDANSETRON [Suspect]
     Active Substance: ONDANSETRON
     Indication: Product used for unknown indication
     Dosage: UNK
     Route: 065

REACTIONS (2)
  - Dysphonia [Fatal]
  - Death [Fatal]
